FAERS Safety Report 17137631 (Version 2)
Quarter: 2019Q4

REPORT INFORMATION
  Report Type: Spontaneous
  Country: GB (occurrence: GB)
  Receive Date: 20191210
  Receipt Date: 20191213
  Transmission Date: 20200122
  Serious: Yes (Death, Other)
  Sender: FDA-Public Use
  Company Number: GB-SA-2019SA337585

PATIENT
  Age: 67 Year
  Sex: Male

DRUGS (2)
  1. VENETOCLAX. [Concomitant]
     Active Substance: VENETOCLAX
     Indication: CHEMOTHERAPY
  2. FASTURTEC [Suspect]
     Active Substance: RASBURICASE

REACTIONS (2)
  - Death [Fatal]
  - Haemolysis [Unknown]

NARRATIVE: CASE EVENT DATE: 2019
